FAERS Safety Report 22122375 (Version 1)
Quarter: 2023Q1

REPORT INFORMATION
  Report Type: Spontaneous
  Country: CZ (occurrence: CZ)
  Receive Date: 20230321
  Receipt Date: 20230321
  Transmission Date: 20230418
  Serious: Yes (Other)
  Sender: FDA-Public Use
  Company Number: None

PATIENT
  Age: 91 Year
  Sex: Male
  Weight: 72 kg

DRUGS (3)
  1. LAGEVRIO [Suspect]
     Active Substance: MOLNUPIRAVIR
     Indication: COVID-19 treatment
     Route: 048
     Dates: start: 20230221, end: 20230225
  2. BETALOC SA [Concomitant]
     Indication: Hypertension
  3. ERDOSTEINE [Concomitant]
     Active Substance: ERDOSTEINE
     Route: 048

REACTIONS (3)
  - Paranoia [Recovering/Resolving]
  - Confusional state [Recovering/Resolving]
  - Delusion [Recovering/Resolving]

NARRATIVE: CASE EVENT DATE: 20230222
